FAERS Safety Report 5769570-5 (Version None)
Quarter: 2008Q2

REPORT INFORMATION
  Report Type: 
  Country: None (occurrence: None)
  Receive Date: 20080612
  Receipt Date: 20080401
  Transmission Date: 20081010
  Serious: No
  Sender: FDA-Public Use
  Company Number: US-ABBOTT-08P-163-0445257-00

PATIENT
  Sex: Female
  Weight: 66.284 kg

DRUGS (4)
  1. HUMIRA [Suspect]
     Indication: RHEUMATOID ARTHRITIS
     Dosage: PFS
     Route: 058
     Dates: start: 20031201
  2. HUMIRA [Suspect]
     Indication: RHEUMATOID ARTHRITIS
     Route: 058
     Dates: start: 20070101
  3. METHOTREXATE [Concomitant]
     Indication: RHEUMATOID ARTHRITIS
     Route: 050
     Dates: start: 20030101
  4. GABAPENTIN [Concomitant]
     Indication: ROTATOR CUFF SYNDROME
     Route: 048
     Dates: start: 20080101

REACTIONS (3)
  - ACCIDENTAL EXPOSURE [None]
  - ACCIDENTAL NEEDLE STICK [None]
  - ROTATOR CUFF SYNDROME [None]
